FAERS Safety Report 9824172 (Version 1)
Quarter: 2014Q1

REPORT INFORMATION
  Report Type: Report from Study
  Country: BR (occurrence: BR)
  Receive Date: 20140116
  Receipt Date: 20140116
  Transmission Date: 20141002
  Serious: Yes (Other)
  Sender: FDA-Public Use
  Company Number: BR-VIIV HEALTHCARE LIMITED-A1056909A

PATIENT
  Age: 32 Year
  Sex: Female

DRUGS (5)
  1. COMBIVIR [Suspect]
     Indication: ANTIRETROVIRAL THERAPY
     Dosage: 2TAB PER DAY
     Route: 048
     Dates: start: 20130703
  2. NORVIR [Suspect]
     Indication: ANTIRETROVIRAL THERAPY
     Dosage: 100MG PER DAY
     Route: 048
     Dates: start: 20130109, end: 20130702
  3. TRUVADA [Suspect]
     Indication: ANTIRETROVIRAL THERAPY
     Dosage: 1U PER DAY
     Route: 048
     Dates: start: 20120815, end: 20130702
  4. REYATAZ [Suspect]
     Indication: ANTIRETROVIRAL THERAPY
     Dosage: 300MG PER DAY
     Route: 048
     Dates: start: 20130109, end: 20130702
  5. KALETRA [Suspect]
     Indication: ANTIRETROVIRAL THERAPY
     Dosage: 4U PER DAY
     Route: 048
     Dates: start: 20130703

REACTIONS (3)
  - Stillbirth [Unknown]
  - Cervical incompetence [Unknown]
  - Exposure during pregnancy [Unknown]
